FAERS Safety Report 13584507 (Version 3)
Quarter: 2018Q2

REPORT INFORMATION
  Report Type: Spontaneous
  Country: CN (occurrence: CN)
  Receive Date: 20170526
  Receipt Date: 20180406
  Transmission Date: 20180711
  Serious: Yes (Hospitalization)
  Sender: FDA-Public Use
  Company Number: CN-JNJFOC-20170506882

PATIENT
  Age: 64 Year
  Sex: Male

DRUGS (3)
  1. ZYTIGA [Suspect]
     Active Substance: ABIRATERONE ACETATE
     Indication: PROSTATE CANCER
     Route: 048
     Dates: start: 201702
  2. ZYTIGA [Suspect]
     Active Substance: ABIRATERONE ACETATE
     Indication: PROSTATE CANCER
     Route: 048
     Dates: start: 20170108
  3. PREDNISONE. [Concomitant]
     Active Substance: PREDNISONE
     Route: 065

REACTIONS (7)
  - Hepatic function abnormal [Unknown]
  - Pyrexia [Unknown]
  - Product physical issue [Unknown]
  - Product label issue [Unknown]
  - Platelet count decreased [Unknown]
  - Genital pain [Unknown]
  - Schizophrenia [Unknown]

NARRATIVE: CASE EVENT DATE: 2017
